FAERS Safety Report 15327044 (Version 1)
Quarter: 2018Q3

REPORT INFORMATION
  Report Type: Spontaneous
  Country: IE (occurrence: IE)
  Receive Date: 20180828
  Receipt Date: 20180828
  Transmission Date: 20181010
  Serious: Yes (Hospitalization)
  Sender: FDA-Public Use
  Company Number: IE-TEVA-2018-IE-948883

PATIENT
  Age: 77 Year
  Sex: Female

DRUGS (7)
  1. ELIQUIS [Concomitant]
     Active Substance: APIXABAN
     Route: 065
  2. AZATHIOPRINE (G) [Concomitant]
     Route: 065
  3. INSULIN (GENERIC) [Concomitant]
     Route: 065
  4. ESOMEPRAZOLE (G) [Concomitant]
     Route: 065
  5. BISOPROLOL (GENERIC) [Concomitant]
     Route: 065
  6. CEFTRIAXONE (G) [Concomitant]
     Route: 065
  7. VANCOMYCIN [Suspect]
     Active Substance: VANCOMYCIN
     Indication: INFECTION
     Dosage: 2 GRAM DAILY;
     Route: 042
     Dates: start: 20180728, end: 20180803

REACTIONS (3)
  - Anaphylactic reaction [Recovered/Resolved]
  - Red man syndrome [Recovered/Resolved]
  - Respiratory distress [Recovered/Resolved]
